FAERS Safety Report 5924857-8 (Version None)
Quarter: 2008Q4

REPORT INFORMATION
  Report Type: 
  Country: None (occurrence: None)
  Receive Date: 20081017
  Receipt Date: 20081017
  Transmission Date: 20090506
  Serious: Yes (Other)
  Sender: FDA-Public Use
  Company Number: None

PATIENT
  Age: 45 Year
  Sex: Male
  Weight: 78.0187 kg

DRUGS (2)
  1. CRESTOR [Suspect]
     Indication: BLOOD CHOLESTEROL INCREASED
     Dosage: 5MG DAILY PO
     Route: 048
     Dates: start: 20080116, end: 20081012
  2. CRESTOR [Suspect]

REACTIONS (2)
  - TENDON DISORDER [None]
  - TENDON PAIN [None]
